FAERS Safety Report 10956698 (Version 1)
Quarter: 2015Q1

REPORT INFORMATION
  Report Type: Spontaneous
  Country: IN (occurrence: None)
  Receive Date: 20150325
  Receipt Date: 20150325
  Transmission Date: 20150721
  Serious: Yes (Hospitalization)
  Sender: FDA-Public Use
  Company Number: None

PATIENT
  Age: 47 Year
  Sex: Female

DRUGS (7)
  1. T. THYROXINE [Concomitant]
  2. HUMAN INSULIN [Suspect]
     Active Substance: INSULIN HUMAN
     Indication: DIABETES MELLITUS INADEQUATE CONTROL
     Dosage: 5 UNITS/HR
     Route: 042
  3. INJ. HEPARIN [Concomitant]
  4. T.TELMISARTAN [Concomitant]
  5. T.TOLVAPTAN [Concomitant]
  6. T. METOPROLOL [Concomitant]
  7. T. CILINDIPINE [Concomitant]

REACTIONS (1)
  - Hypokalaemia [None]
